FAERS Safety Report 9191866 (Version 1)
Quarter: 2013Q1

REPORT INFORMATION
  Report Type: Spontaneous
  Country: US (occurrence: US)
  Receive Date: 20130327
  Receipt Date: 20130327
  Transmission Date: 20140127
  Serious: No
  Sender: FDA-Public Use
  Company Number: US-BIOGENIDEC-2013BI026513

PATIENT
  Sex: Female

DRUGS (1)
  1. TYSABRI [Suspect]
     Indication: MULTIPLE SCLEROSIS
     Route: 042
     Dates: start: 20120209

REACTIONS (5)
  - Feeling abnormal [Recovered/Resolved]
  - Energy increased [Recovered/Resolved]
  - Myalgia [Recovered/Resolved]
  - Melanocytic naevus [Unknown]
  - Multiple sclerosis relapse [Recovered/Resolved]
